FAERS Safety Report 4488995-1 (Version None)
Quarter: 2004Q4

REPORT INFORMATION
  Report Type: 
  Country: None (occurrence: None)
  Receive Date: 20041029
  Receipt Date: 20041001
  Transmission Date: 20050328
  Serious: Yes (Life-Threatening, Hospitalization)
  Sender: FDA-Public Use
  Company Number: ZA-BRISTOL-MYERS SQUIBB COMPANY-12726741

PATIENT
  Age: 37 Year
  Sex: Female

DRUGS (3)
  1. EFAVIRENZ CAPS 200 MG [Suspect]
     Indication: HIV INFECTION
     Dosage: INTERRUPTED ON 07-SEP-2004 AND REINTRODUCED IN OCT-2004
     Route: 048
     Dates: start: 20040126
  2. DIDANOSINE [Suspect]
     Indication: HIV INFECTION
     Route: 048
     Dates: start: 20040126, end: 20040907
  3. STAVUDINE [Concomitant]
     Indication: HIV INFECTION
     Dates: start: 20040126, end: 20040907

REACTIONS (1)
  - PANCREATITIS [None]
